FAERS Safety Report 9304173 (Version 2)
Quarter: 2013Q2

REPORT INFORMATION
  Report Type: Spontaneous
  Country: JP (occurrence: JP)
  Receive Date: 20130522
  Receipt Date: 20130614
  Transmission Date: 20140414
  Serious: Yes (Other)
  Sender: FDA-Public Use
  Company Number: JP-OTSUKA-JP-2013-11085

PATIENT
  Age: 81 Year
  Sex: Female
  Weight: 41.5 kg

DRUGS (16)
  1. SAMSCA [Suspect]
     Indication: CARDIAC FAILURE
     Dosage: 7.5 MG MILLIGRAM(S), QD
     Route: 048
     Dates: start: 20130325, end: 20130326
  2. SAMSCA [Suspect]
     Indication: OEDEMA
  3. LASIX [Concomitant]
     Indication: CARDIAC FAILURE
     Dosage: 40 MG MILLIGRAM(S), QD
     Route: 048
     Dates: start: 20070723, end: 20130502
  4. LASIX [Concomitant]
     Indication: OEDEMA
  5. ALDACTONE A [Concomitant]
     Indication: CARDIAC FAILURE
     Dosage: 50 MG MILLIGRAM(S), QD
     Route: 048
     Dates: start: 20070723, end: 20130502
  6. ALDACTONE A [Concomitant]
     Indication: OEDEMA
  7. MAINTATE [Concomitant]
     Indication: CARDIAC FAILURE
     Dosage: 0.625 MG MILLIGRAM(S), QD
     Route: 048
     Dates: start: 20070723, end: 20130502
  8. MAINTATE [Concomitant]
     Indication: OEDEMA
  9. PIMOBENDAN [Concomitant]
     Indication: CARDIAC FAILURE
     Dosage: 1.25 MG MILLIGRAM(S), BID
     Route: 048
     Dates: start: 20101114, end: 20130502
  10. PIMOBENDAN [Concomitant]
     Indication: OEDEMA
  11. FLUITRAN [Concomitant]
     Indication: CARDIAC FAILURE
     Dosage: 1 MG MILLIGRAM(S), QD
     Route: 048
     Dates: start: 20101114, end: 20130502
  12. FLUITRAN [Concomitant]
     Indication: OEDEMA
  13. AMIODARONE HYDROCHLORIDE [Concomitant]
     Indication: VENTRICULAR ARRHYTHMIA
     Dosage: 100 MG MILLIGRAM(S), BID
     Route: 048
     Dates: start: 20101114, end: 20130502
  14. FEBURIC [Concomitant]
     Indication: HYPERURICAEMIA
     Dosage: 10 MG MILLIGRAM(S), QD
     Route: 048
     Dates: start: 20120517, end: 20130502
  15. NEXIUM [Concomitant]
     Indication: GASTROOESOPHAGEAL REFLUX DISEASE
     Dosage: 20 MG MILLIGRAM(S), QD
     Route: 048
     Dates: start: 20130128, end: 20130502
  16. ENSURE [Concomitant]
     Route: 048

REACTIONS (3)
  - Rapid correction of hyponatraemia [Unknown]
  - Blood urea increased [Unknown]
  - Hypernatraemia [Recovering/Resolving]
